FAERS Safety Report 6286306-2 (Version None)
Quarter: 2009Q3

REPORT INFORMATION
  Report Type: 
  Country: None (occurrence: None)
  Receive Date: 20090724
  Receipt Date: 20090708
  Transmission Date: 20100115
  Serious: Yes (Death)
  Sender: FDA-Public Use
  Company Number: BET-1711-AE

PATIENT
  Age: 80 Year
  Sex: Male

DRUGS (1)
  1. BETIMOL [Suspect]

REACTIONS (2)
  - METASTASES TO BONE [None]
  - RENAL CANCER METASTATIC [None]
